FAERS Safety Report 7782818-0 (Version None)
Quarter: 2011Q3

REPORT INFORMATION
  Report Type: 
  Country: None (occurrence: None)
  Receive Date: 20110927
  Receipt Date: 20110927
  Transmission Date: 20111222
  Serious: Yes (Hospitalization)
  Sender: FDA-Public Use
  Company Number: None

PATIENT
  Sex: Female

DRUGS (1)
  1. TIKOSYN [Suspect]
     Indication: ATRIAL FIBRILLATION
     Dosage: 125MG BID PO
     Route: 048
     Dates: start: 20100128, end: 20110601

REACTIONS (3)
  - CARDIAC PACEMAKER INSERTION [None]
  - ATRIAL FIBRILLATION [None]
  - NO THERAPEUTIC RESPONSE [None]
